FAERS Safety Report 4288393-X (Version None)
Quarter: 2004Q1

REPORT INFORMATION
  Report Type: 
  Country: None (occurrence: None)
  Receive Date: 20040205
  Receipt Date: 20040127
  Transmission Date: 20041129
  Serious: Yes (Hospitalization)
  Sender: FDA-Public Use
  Company Number: 2003125462

PATIENT
  Age: 72 Year
  Sex: Male
  Weight: 89 kg

DRUGS (2)
  1. VFEND [Suspect]
     Indication: PULMONARY MYCOSIS
     Dosage: 800 MG (BID), ORAL
     Route: 048
     Dates: start: 20031001, end: 20031201
  2. CLADRIBINE [Concomitant]

REACTIONS (4)
  - FALL [None]
  - GAIT DISTURBANCE [None]
  - HALLUCINATION, VISUAL [None]
  - VERTIGO [None]
